FAERS Safety Report 25339998 (Version 1)
Quarter: 2025Q2

REPORT INFORMATION
  Report Type: Spontaneous
  Country: JP (occurrence: JP)
  Receive Date: 20250521
  Receipt Date: 20250521
  Transmission Date: 20250716
  Serious: Yes (Other)
  Sender: UCB
  Company Number: JP-UCBJ-CD202506515UCBPHAPROD

PATIENT

DRUGS (1)
  1. VIMPAT [Suspect]
     Active Substance: LACOSAMIDE
     Indication: Product used for unknown indication
     Dosage: 50 MILLIGRAM, ONCE DAILY (QD)
     Route: 048

REACTIONS (3)
  - Epilepsy [Recovered/Resolved]
  - Prescribed underdose [Unknown]
  - Off label use [Unknown]
